FAERS Safety Report 6315484-1 (Version None)
Quarter: 2009Q3

REPORT INFORMATION
  Report Type: 
  Country: None (occurrence: None)
  Receive Date: 20090819
  Receipt Date: 20090810
  Transmission Date: 20100115
  Serious: Yes (Hospitalization, Other)
  Sender: FDA-Public Use
  Company Number: US-ABBOTT-08P-163-0468975-00

PATIENT
  Sex: Male

DRUGS (24)
  1. NIASPAN [Suspect]
     Indication: BLOOD CHOLESTEROL INCREASED
     Route: 048
     Dates: start: 20080325, end: 20080328
  2. NIASPAN [Suspect]
     Indication: HYPERLIPIDAEMIA
  3. BLOOD PRESSURE PILL [Concomitant]
     Indication: HYPERTENSION
     Route: 048
  4. CHOLESTEROL PILL [Concomitant]
     Indication: BLOOD CHOLESTEROL INCREASED
     Route: 048
  5. DIABETES PILL [Concomitant]
     Indication: TYPE 2 DIABETES MELLITUS
     Route: 048
  6. ATENOLOL [Concomitant]
     Indication: DRUG USE FOR UNKNOWN INDICATION
     Dosage: DAILY IN THE MORNING
     Route: 048
     Dates: start: 20040413
  7. ATENOLOL [Concomitant]
     Route: 048
  8. ZOLOFT [Concomitant]
     Indication: DRUG USE FOR UNKNOWN INDICATION
     Dosage: DAILY IN THE MORNING
     Route: 048
     Dates: start: 20040714
  9. ZOLOFT [Concomitant]
  10. METFORMIN HCL [Concomitant]
     Indication: DRUG USE FOR UNKNOWN INDICATION
  11. LIPITOR [Concomitant]
     Indication: HYPERLIPIDAEMIA
     Dates: start: 20050117, end: 20050419
  12. LIPITOR [Concomitant]
     Route: 048
     Dates: start: 20050419
  13. LIPITOR [Concomitant]
     Route: 048
  14. ASPIRIN [Concomitant]
     Indication: DRUG USE FOR UNKNOWN INDICATION
     Dosage: DAILY IN THE MORNING
     Route: 048
     Dates: start: 20040413
  15. ASPIRIN [Concomitant]
  16. METFORMIN [Concomitant]
     Indication: DRUG USE FOR UNKNOWN INDICATION
     Route: 048
     Dates: end: 20080328
  17. ACETAMINOPHEN [Concomitant]
     Indication: PAIN
     Dosage: EVERY 4 HOURS AS NEEDED
     Route: 048
  18. ACETAMINOPHEN [Concomitant]
     Indication: BODY TEMPERATURE INCREASED
  19. TEMAZEPAM [Concomitant]
     Indication: INSOMNIA
     Dosage: DAILY AT BEDTIME, AS NEEDED
     Route: 048
  20. MILK OF MAGNESIA TAB [Concomitant]
     Indication: CONSTIPATION
     Dosage: DAILY, AS NEEDED
     Route: 048
  21. BISACODYL [Concomitant]
     Indication: CONSTIPATION
     Dosage: DAILY, AS NEEDED
     Route: 054
  22. CEPACOL [Concomitant]
     Indication: OROPHARYNGEAL PAIN
     Dosage: AS NEEDED
     Route: 048
  23. POTASSIUM CHLORIDE [Concomitant]
     Indication: DRUG USE FOR UNKNOWN INDICATION
     Dosage: POTASSIUM LEVEL 3.6-3.9, 1 TIME PO OR IV, PRN
  24. POTASSIUM CHLORIDE [Concomitant]

REACTIONS (14)
  - BLOOD GLUCOSE INCREASED [None]
  - BUNDLE BRANCH BLOCK RIGHT [None]
  - CONTUSION [None]
  - ERYTHEMA [None]
  - FACIAL BONES FRACTURE [None]
  - FALL [None]
  - FLUSHING [None]
  - HEAD INJURY [None]
  - HEART RATE DECREASED [None]
  - HEART RATE IRREGULAR [None]
  - HYPOTENSION [None]
  - JOINT INJURY [None]
  - SYNCOPE [None]
  - THROMBOCYTOPENIA [None]
